FAERS Safety Report 9773889 (Version 1)
Quarter: 2013Q4

REPORT INFORMATION
  Report Type: Spontaneous
  Country: ES (occurrence: ES)
  Receive Date: 20131220
  Receipt Date: 20131220
  Transmission Date: 20140711
  Serious: Yes (Hospitalization, Other)
  Sender: FDA-Public Use
  Company Number: ES-009507513-1312ESP007336

PATIENT
  Age: 56 Year
  Sex: Female

DRUGS (8)
  1. VICTRELIS [Suspect]
     Indication: CHRONIC HEPATITIS C
     Dosage: 400 MG, TID
     Route: 048
     Dates: start: 20130408, end: 20130426
  2. RIBAVIRIN [Suspect]
     Indication: CHRONIC HEPATITIS C
     Dosage: 600 MG, BID
     Route: 048
     Dates: start: 20130311, end: 20130426
  3. PEGINTRON [Suspect]
     Indication: CHRONIC HEPATITIS C
     Dosage: 120 MICROGRAM, QW
     Route: 058
     Dates: start: 20130311, end: 20130426
  4. CIPROFLOXACIN [Concomitant]
  5. ULTRACAIN [Concomitant]
  6. ATENOLOL [Concomitant]
  7. LORAZEPAM [Concomitant]
  8. OMEPRAZOLE [Concomitant]

REACTIONS (2)
  - Pancytopenia [Recovered/Resolved]
  - Diarrhoea [Recovered/Resolved]
